FAERS Safety Report 14263645 (Version 1)
Quarter: 2017Q4

REPORT INFORMATION
  Report Type: Spontaneous
  Country: IT (occurrence: IT)
  Receive Date: 20171208
  Receipt Date: 20171208
  Transmission Date: 20180321
  Serious: Yes (Other)
  Sender: FDA-Public Use
  Company Number: IT-AUROBINDO-AUR-APL-2017-44380

PATIENT

DRUGS (1)
  1. PAROXETINE. [Suspect]
     Active Substance: PAROXETINE
     Indication: PRODUCT USED FOR UNKNOWN INDICATION
     Dosage: 14 DF, TOTAL
     Route: 048
     Dates: start: 20171028, end: 20171028

REACTIONS (2)
  - Agitation [Recovering/Resolving]
  - Drug abuse [Recovering/Resolving]

NARRATIVE: CASE EVENT DATE: 20171028
